FAERS Safety Report 13800901 (Version 1)
Quarter: 2017Q3

REPORT INFORMATION
  Report Type: Spontaneous
  Country: BE (occurrence: BE)
  Receive Date: 20170727
  Receipt Date: 20170727
  Transmission Date: 20171127
  Serious: Yes (Life-Threatening, Hospitalization)
  Sender: FDA-Public Use
  Company Number: BE-PFIZER INC-1212009

PATIENT
  Age: 43 Year
  Sex: Female
  Weight: 45.8 kg

DRUGS (14)
  1. CYTARABINE. [Suspect]
     Active Substance: CYTARABINE
     Dosage: CONSOLIDATION-2,DAYS 1-5
     Route: 041
     Dates: start: 20120127, end: 20120131
  2. PANTOMED (DEXPANTHENOL) [Concomitant]
     Active Substance: DEXPANTHENOL
     Indication: GASTROINTESTINAL HAEMORRHAGE
     Dosage: 40 MG, UNK
     Route: 048
     Dates: start: 20120126, end: 20120222
  3. TAZOCIN [Concomitant]
     Active Substance: PIPERACILLIN SODIUM\TAZOBACTAM SODIUM
     Indication: FEBRILE NEUTROPENIA
     Dosage: 12 G, UNK
     Route: 042
     Dates: start: 20120211, end: 20120222
  4. VFEND [Concomitant]
     Active Substance: VORICONAZOLE
     Indication: ASPERGILLUS INFECTION
     Dosage: 200 MG, UNK
     Route: 048
     Dates: start: 20120217, end: 20120222
  5. CYTARABINE. [Suspect]
     Active Substance: CYTARABINE
     Dosage: 1387 MG(INDUCTION-1,DAYS 1-5)
     Route: 041
     Dates: start: 20111121, end: 20111125
  6. FRAXIPARINE /01437701/ [Suspect]
     Active Substance: NADROPARIN CALCIUM
     Indication: EMBOLISM
  7. KCL [Concomitant]
     Active Substance: POTASSIUM CHLORIDE
     Indication: HYPOKALAEMIA
     Dosage: 60 MEQ, UNK
     Route: 042
     Dates: start: 20120217, end: 20120222
  8. MAGNESIUM SULFATE. [Concomitant]
     Active Substance: MAGNESIUM SULFATE
     Indication: HYPOMAGNESAEMIA
     Dosage: 10 ML, UNK
     Route: 042
     Dates: start: 20120217, end: 20120222
  9. FRAXIPARINE /01437701/ [Suspect]
     Active Substance: NADROPARIN CALCIUM
     Indication: PROPHYLAXIS
     Dosage: 0.3 ML, UNK
     Route: 042
     Dates: start: 20120127, end: 20120219
  10. ZOVIRAX [Concomitant]
     Active Substance: ACYCLOVIR
     Indication: ANTIVIRAL PROPHYLAXIS
     Dosage: 400 MG, UNK
     Route: 048
     Dates: start: 20120127, end: 20120222
  11. CYTARABINE. [Suspect]
     Active Substance: CYTARABINE
     Indication: ACUTE MYELOID LEUKAEMIA
     Dosage: 1436 MG(CONSOLIDATION-1,DAYS1-5)
     Route: 041
     Dates: start: 20111221, end: 20111225
  12. NACL [Concomitant]
     Active Substance: SODIUM CHLORIDE
     Indication: FLUID REPLACEMENT
     Dosage: 500 ML, UNK
     Route: 042
     Dates: start: 20120127, end: 20120222
  13. BICARBONATE SODIUM [Concomitant]
     Active Substance: SODIUM BICARBONATE
     Indication: BLOOD BICARBONATE DECREASED
     Dosage: 100 MEQ, UNK
     Route: 042
     Dates: start: 20120215, end: 20120222
  14. TRIBVIT [Concomitant]
     Indication: PRODUCT USED FOR UNKNOWN INDICATION
     Dosage: 1 DF, UNK
     Route: 048
     Dates: start: 20120127, end: 20120222

REACTIONS (1)
  - Haemothorax [Recovered/Resolved with Sequelae]

NARRATIVE: CASE EVENT DATE: 20120221
